FAERS Safety Report 5476531-2 (Version None)
Quarter: 2007Q3

REPORT INFORMATION
  Report Type: 
  Country: None (occurrence: None)
  Receive Date: 20070926
  Receipt Date: 20061220
  Transmission Date: 20080115
  Serious: Yes (Other)
  Sender: FDA-Public Use
  Company Number: 2006155462

PATIENT
  Age: 9 Month

DRUGS (1)
  1. ZYRTEC [Suspect]

REACTIONS (1)
  - CONVULSION [None]
